FAERS Safety Report 8023759-3 (Version None)
Quarter: 2012Q1

REPORT INFORMATION
  Report Type: 
  Country: None (occurrence: None)
  Receive Date: 20120105
  Receipt Date: 20111229
  Transmission Date: 20120608
  Serious: Yes (Other)
  Sender: FDA-Public Use
  Company Number: DE-ELI_LILLY_AND_COMPANY-DE201112001989

PATIENT
  Sex: Female

DRUGS (10)
  1. SIMVASTATIN [Concomitant]
     Dosage: UNK
  2. SPASMEX [Concomitant]
     Dosage: UNK
  3. CYMBALTA [Suspect]
     Indication: DEPRESSION
     Dosage: 60 MG, QD
     Route: 048
     Dates: start: 20070101, end: 20110920
  4. ACTRAPID                           /00030501/ [Concomitant]
     Dosage: UNK
  5. ENALAPRIL MALEATE [Concomitant]
     Dosage: UNK
  6. LERCANIDIPINE [Concomitant]
     Dosage: UNK
  7. OMEPRAZOLE [Concomitant]
     Dosage: UNK
  8. NEBIVOLOL HCL [Concomitant]
     Dosage: UNK
  9. TORSEMIDE [Concomitant]
     Dosage: UNK
  10. ASPIRIN [Concomitant]
     Dosage: UNK

REACTIONS (1)
  - GAMMA-GLUTAMYLTRANSFERASE INCREASED [None]
